FAERS Safety Report 4964050-9 (Version None)
Quarter: 2006Q1

REPORT INFORMATION
  Report Type: 
  Country: None (occurrence: None)
  Receive Date: 20060330
  Receipt Date: 20060320
  Transmission Date: 20060701
  Serious: No
  Sender: FDA-Public Use
  Company Number: 20062814

PATIENT
  Sex: Female

DRUGS (1)
  1. LIORESAL [Suspect]
     Indication: MUSCLE SPASTICITY
     Dosage: 705 MCG, DAILY, INTRATHECAL
     Route: 037

REACTIONS (4)
  - INCORRECT DOSE ADMINISTERED [None]
  - MUSCLE SPASTICITY [None]
  - PRURITUS [None]
  - PSYCHOTIC DISORDER [None]
